FAERS Safety Report 6669284-3 (Version None)
Quarter: 2010Q2

REPORT INFORMATION
  Report Type: 
  Country: None (occurrence: None)
  Receive Date: 20100402
  Receipt Date: 20100330
  Transmission Date: 20101027
  Serious: Yes (Other)
  Sender: FDA-Public Use
  Company Number: A0852599A

PATIENT
  Age: 77 Year
  Sex: Female

DRUGS (1)
  1. METHYLCELLULOSE (FORMULATION UNKNOWN) REGULAR (METHYLCELLULOSE) [Suspect]
     Dosage: ORAL
     Route: 048

REACTIONS (2)
  - DRUG ADMINISTRATION ERROR [None]
  - INTESTINAL OBSTRUCTION [None]
